FAERS Safety Report 8924050 (Version 1)
Quarter: 2012Q4

REPORT INFORMATION
  Report Type: 
  Country: JP (occurrence: JP)
  Receive Date: 20121127
  Receipt Date: 20121127
  Transmission Date: 20130627
  Serious: Yes (Hospitalization)
  Sender: FDA-Public Use
  Company Number: JP-009507513-1211JPN010426

PATIENT
  Age: 51 Year
  Sex: Male
  Weight: 80 kg

DRUGS (10)
  1. PEGINTRON [Suspect]
     Indication: CHRONIC HEPATITIS C
     Dosage: 1.25 Microgram per kilogram, qw
     Route: 058
     Dates: start: 20120301, end: 20120322
  2. PEGINTRON [Suspect]
     Dosage: 1.5 Microgram per kilogram, qw
     Route: 058
     Dates: start: 20120329, end: 20120809
  3. REBETOL [Suspect]
     Indication: CHRONIC HEPATITIS C
     Dosage: 800 mg, qd
     Route: 048
     Dates: start: 20120301, end: 20120311
  4. REBETOL [Suspect]
     Dosage: 400 mg, qd
     Route: 048
     Dates: start: 20120312, end: 20120613
  5. REBETOL [Suspect]
     Dosage: 600 mg, qd
     Route: 048
     Dates: start: 20120614, end: 20120620
  6. REBETOL [Suspect]
     Dosage: 800 mg, qd
     Route: 048
     Dates: start: 20120621, end: 20120815
  7. TELAVIC [Suspect]
     Indication: CHRONIC HEPATITIS C
     Dosage: 2250 mg, qd
     Route: 048
     Dates: start: 20120301, end: 20120427
  8. TELAVIC [Suspect]
     Dosage: 1500mg, qd
     Route: 048
     Dates: start: 20120428
  9. NABOAL [Concomitant]
     Indication: MYELITIS
     Dosage: UNK, prn
     Route: 051
     Dates: start: 20120428, end: 20120520
  10. LOXONIN [Concomitant]
     Indication: PROPHYLAXIS
     Dosage: 180 mg, qd
     Route: 048
     Dates: start: 20120502

REACTIONS (1)
  - Malaise [Recovering/Resolving]
